FAERS Safety Report 8573325-6 (Version None)
Quarter: 2012Q3

REPORT INFORMATION
  Report Type: 
  Country: None (occurrence: None)
  Receive Date: 20120806
  Receipt Date: 20120801
  Transmission Date: 20120928
  Serious: Yes (Hospitalization)
  Sender: FDA-Public Use
  Company Number: NO-EISAI INC-E2090-02241-SPO-NO

PATIENT
  Age: 35 Year
  Sex: Female
  Weight: 45 kg

DRUGS (9)
  1. TOPIRAMATE [Interacting]
     Indication: EPILEPSY
     Dates: start: 20090901, end: 20120501
  2. LEVETRIAZETAM [Concomitant]
  3. LAMOTRIGINE [Concomitant]
  4. CLONAZEPAM [Concomitant]
  5. ZONEGRAN [Suspect]
     Indication: EPILEPSY
     Route: 048
     Dates: start: 20110822, end: 20120109
  6. NITROZEPAM [Concomitant]
  7. VALPROATE SODIUM [Concomitant]
  8. KARBAMAZEPIN [Concomitant]
  9. PHENOBARBITAL TAB [Concomitant]

REACTIONS (1)
  - PSYCHOTIC DISORDER [None]
